FAERS Safety Report 25671211 (Version 1)
Quarter: 2025Q3

REPORT INFORMATION
  Report Type: Spontaneous
  Country: US (occurrence: US)
  Receive Date: 20250812
  Receipt Date: 20250812
  Transmission Date: 20251021
  Serious: Yes (Other)
  Sender: OTSUKA
  Company Number: US-MMM-Otsuka-RVGAMZQC

PATIENT
  Age: 92 Year
  Sex: Male

DRUGS (5)
  1. REXULTI [Interacting]
     Active Substance: BREXPIPRAZOLE
     Indication: Agitation
     Route: 048
  2. REXULTI [Interacting]
     Active Substance: BREXPIPRAZOLE
     Indication: Dementia Alzheimer^s type
     Route: 048
  3. REXULTI [Interacting]
     Active Substance: BREXPIPRAZOLE
     Route: 048
  4. ZOLOFT [Interacting]
     Active Substance: SERTRALINE HYDROCHLORIDE
     Indication: Depression
     Route: 065
  5. BIAXIN [Interacting]
     Active Substance: CLARITHROMYCIN
     Indication: Pneumonia
     Dosage: 500 MG, BID
     Route: 065

REACTIONS (3)
  - Pneumonia [Unknown]
  - Sedation [Unknown]
  - Labelled drug-drug interaction issue [Unknown]
